FAERS Safety Report 5829985-3 (Version None)
Quarter: 2008Q3

REPORT INFORMATION
  Report Type: 
  Country: None (occurrence: None)
  Receive Date: 20080801
  Receipt Date: 20080725
  Transmission Date: 20090109
  Serious: Yes (Other)
  Sender: FDA-Public Use
  Company Number: US-ROCHE-577565

PATIENT
  Sex: Male
  Weight: 89.3 kg

DRUGS (2)
  1. CAPECITABINE [Suspect]
     Dosage: ON FOR TWO WEEKS AND THEN OFF FOR A WEEK
     Route: 048
     Dates: start: 20050529, end: 20080723
  2. ERBITUX [Concomitant]

REACTIONS (1)
  - DISEASE PROGRESSION [None]
